FAERS Safety Report 6072026-6 (Version None)
Quarter: 2009Q1

REPORT INFORMATION
  Report Type: 
  Country: None (occurrence: None)
  Receive Date: 20090205
  Receipt Date: 20090205
  Transmission Date: 20090719
  Serious: Yes (Hospitalization)
  Sender: FDA-Public Use
  Company Number: None

PATIENT
  Sex: Male
  Weight: 63.3 kg

DRUGS (6)
  1. CYTARABINE [Suspect]
     Dosage: 27840
     Dates: end: 20080711
  2. ETOPOSIDE [Suspect]
     Dosage: 6574 MG
     Dates: end: 20080901
  3. G-CSF (FILGRASTIM, AMGEN) [Suspect]
     Dosage: 7800 MCG
     Dates: end: 20080724
  4. BUSULFAN [Suspect]
     Dosage: 864 MG
     Dates: end: 20080831
  5. MULTI-VITAMIN [Concomitant]
  6. VALACYCLOVIR [Concomitant]

REACTIONS (3)
  - DIARRHOEA [None]
  - ESCHERICHIA BACTERAEMIA [None]
  - FEBRILE NEUTROPENIA [None]
